FAERS Safety Report 5460620-2 (Version None)
Quarter: 2007Q3

REPORT INFORMATION
  Report Type: 
  Country: None (occurrence: None)
  Receive Date: 20070919
  Receipt Date: 20070910
  Transmission Date: 20080115
  Serious: Yes (Other)
  Sender: FDA-Public Use
  Company Number: US-PFIZER INC-2007075950

PATIENT
  Sex: Female
  Weight: 90 kg

DRUGS (4)
  1. CHANTIX [Suspect]
     Indication: SMOKING CESSATION THERAPY
     Dates: start: 20070801, end: 20070909
  2. HYDROCODONE [Concomitant]
  3. DIURETICS [Concomitant]
     Indication: DIURETIC THERAPY
  4. ALL OTHER THERAPEUTIC PRODUCTS [Concomitant]
     Indication: BLOOD GLUCOSE

REACTIONS (2)
  - HEART RATE DECREASED [None]
  - OXYGEN SATURATION DECREASED [None]
